FAERS Safety Report 23062252 (Version 1)
Quarter: 2023Q4

REPORT INFORMATION
  Report Type: Spontaneous
  Country: US (occurrence: US)
  Receive Date: 20231013
  Receipt Date: 20231013
  Transmission Date: 20240109
  Serious: No
  Sender: FDA-Public Use
  Company Number: US-Shield TX (UK) Ltd-US-STX-22-00022

PATIENT
  Sex: Male

DRUGS (3)
  1. ACCRUFER [Suspect]
     Active Substance: FERRIC MALTOL
     Indication: Iron deficiency anaemia
     Dosage: 1 DOSAGE FORM, BID  |  DAILY DOSE UNIT : DOSAGE FORMS  |  UNIT DOSE UNIT : DOSAGE FORMS
     Route: 048
     Dates: start: 20220727
  2. IRON [Concomitant]
     Active Substance: IRON
     Indication: Product used for unknown indication
  3. IRON [Concomitant]
     Active Substance: IRON
     Indication: Product used for unknown indication
     Dosage: UNK UNK
     Route: 042

REACTIONS (1)
  - Urticaria [Unknown]
